FAERS Safety Report 24960953 (Version 1)
Quarter: 2025Q1

REPORT INFORMATION
  Report Type: Spontaneous
  Country: US (occurrence: None)
  Receive Date: 20250211
  Receipt Date: 20250211
  Transmission Date: 20250409
  Serious: Yes (Death)
  Sender: FDA-CTU
  Company Number: None

PATIENT
  Age: 67 Year
  Sex: Female
  Weight: 76 kg

DRUGS (1)
  1. CEFTRIAXONE [Suspect]
     Active Substance: CEFTRIAXONE
     Indication: Wound infection
     Route: 042
     Dates: start: 20241223, end: 20241223

REACTIONS (7)
  - Product odour abnormal [None]
  - Dizziness [None]
  - Unresponsive to stimuli [None]
  - Nausea [None]
  - Respiratory disorder [None]
  - Blood pressure abnormal [None]
  - Pulseless electrical activity [None]

NARRATIVE: CASE EVENT DATE: 20241223
